FAERS Safety Report 14283175 (Version 4)
Quarter: 2019Q2

REPORT INFORMATION
  Report Type: Spontaneous
  Country: US (occurrence: US)
  Receive Date: 20171213
  Receipt Date: 20190415
  Transmission Date: 20190711
  Serious: Yes (Hospitalization)
  Sender: FDA-Public Use
  Company Number: US-ACTELION-A-US2017-164049

PATIENT
  Age: 59 Year
  Sex: Female

DRUGS (14)
  1. BUSPIRONE [Concomitant]
     Active Substance: BUSPIRONE HYDROCHLORIDE
  2. PROAIR HFA [Concomitant]
     Active Substance: ALBUTEROL SULFATE
  3. METAXALONE. [Concomitant]
     Active Substance: METAXALONE
  4. IBUPROFEN. [Concomitant]
     Active Substance: IBUPROFEN
  5. FUROSEMIDE. [Concomitant]
     Active Substance: FUROSEMIDE
  6. TYVASO [Concomitant]
     Active Substance: TREPROSTINIL
     Dosage: UNK
  7. SILDENAFIL. [Concomitant]
     Active Substance: SILDENAFIL
  8. AMOXICILLIN. [Concomitant]
     Active Substance: AMOXICILLIN
  9. ATENOLOL. [Concomitant]
     Active Substance: ATENOLOL
  10. CARVEDILOL. [Concomitant]
     Active Substance: CARVEDILOL
  11. AZITHROMYCIN ANHYDROUS. [Concomitant]
     Active Substance: AZITHROMYCIN ANHYDROUS
  12. NAPROXEN. [Concomitant]
     Active Substance: NAPROXEN
  13. TRACLEER [Suspect]
     Active Substance: BOSENTAN
     Indication: PULMONARY ARTERIAL HYPERTENSION
     Dosage: 125 MG, BID
     Route: 048
     Dates: start: 20150616
  14. LISINOPRIL. [Concomitant]
     Active Substance: LISINOPRIL

REACTIONS (2)
  - Fluid retention [Recovered/Resolved]
  - Pulmonary oedema [Unknown]

NARRATIVE: CASE EVENT DATE: 201707
